FAERS Safety Report 21559455 (Version 1)
Quarter: 2022Q4

REPORT INFORMATION
  Report Type: Spontaneous
  Country: CA (occurrence: CA)
  Receive Date: 20221107
  Receipt Date: 20221107
  Transmission Date: 20230113
  Serious: Yes (Hospitalization)
  Sender: FDA-Public Use
  Company Number: CA-ORGANON-O2210CAN002299

PATIENT
  Age: 80 Year
  Sex: Female

DRUGS (7)
  1. REMERON [Suspect]
     Active Substance: MIRTAZAPINE
     Indication: Major depression
     Dosage: 15.0 MILLIGRAM
     Route: 065
  2. REMERON [Suspect]
     Active Substance: MIRTAZAPINE
     Indication: Insomnia
  3. REMERON [Suspect]
     Active Substance: MIRTAZAPINE
     Indication: Major depression
     Dosage: 30.0 MILLIGRAM
     Route: 065
  4. REMERON [Suspect]
     Active Substance: MIRTAZAPINE
     Indication: Insomnia
  5. RAMIPRIL [Suspect]
     Active Substance: RAMIPRIL
     Indication: Product used for unknown indication
     Dosage: 5 MILLIGRAM, DOSAGE FORM:: NOT SPECIFIED
     Route: 065
  6. TRAZODONE [Suspect]
     Active Substance: TRAZODONE HYDROCHLORIDE
     Indication: Major depression
     Dosage: 75.0 MILLIGRAM, 1 EVERY 1 DAY
     Route: 065
  7. TRAZODONE [Suspect]
     Active Substance: TRAZODONE HYDROCHLORIDE
     Indication: Insomnia
     Dosage: 50.0 MILLIGRAM, 1 EVERY 1 DAY
     Route: 065

REACTIONS (2)
  - Suicide attempt [Recovered/Resolved]
  - Intentional overdose [Recovered/Resolved]
